FAERS Safety Report 4515180-7 (Version None)
Quarter: 2004Q4

REPORT INFORMATION
  Report Type: 
  Country: None (occurrence: None)
  Receive Date: 20041201
  Receipt Date: 20041119
  Transmission Date: 20050328
  Serious: Yes (Hospitalization)
  Sender: FDA-Public Use
  Company Number: US-GLAXOSMITHKLINE-A0534663A

PATIENT
  Age: 38 Year
  Sex: Female

DRUGS (4)
  1. WELLBUTRIN [Suspect]
     Indication: DEPRESSION
  2. LAMICTAL [Suspect]
     Indication: BIPOLAR DISORDER
     Route: 048
     Dates: start: 20041001
  3. PAXIL [Suspect]
     Indication: DEPRESSION
  4. PROGESTERONE [Concomitant]

REACTIONS (7)
  - CONVULSION [None]
  - HEADACHE [None]
  - INSOMNIA [None]
  - PRURITUS [None]
  - RASH [None]
  - ROAD TRAFFIC ACCIDENT [None]
  - URTICARIA [None]
